FAERS Safety Report 4375711-7 (Version None)
Quarter: 2004Q2

REPORT INFORMATION
  Report Type: 
  Country: None (occurrence: None)
  Receive Date: 20040607
  Receipt Date: 20040514
  Transmission Date: 20050107
  Serious: Yes (Other)
  Sender: FDA-Public Use
  Company Number: 6008895

PATIENT
  Age: 30 Year
  Sex: Male

DRUGS (2)
  1. CARDICOR(TABLETS) (BISOPROLOL) [Suspect]
     Dosage: ORAL
     Route: 048
  2. PAROXETINE HCL [Suspect]

REACTIONS (1)
  - GLOMERULONEPHRITIS MEMBRANOUS [None]
